FAERS Safety Report 12767847 (Version 1)
Quarter: 2016Q3

REPORT INFORMATION
  Report Type: Report from Study
  Country: US (occurrence: US)
  Receive Date: 20160921
  Receipt Date: 20160921
  Transmission Date: 20161109
  Serious: Yes (Hospitalization)
  Sender: FDA-Public Use
  Company Number: US-MALLINCKRODT-T201602470

PATIENT
  Sex: Female

DRUGS (2)
  1. REPOSITORY CORTICOTROPIN INJECTION [Suspect]
     Active Substance: CORTICOTROPIN
     Indication: NEPHROTIC SYNDROME
     Dosage: 40 UNITS TWICE WEEKLY (TUE/FRI)
     Route: 030
     Dates: start: 20160415, end: 20160701
  2. REPOSITORY CORTICOTROPIN INJECTION [Suspect]
     Active Substance: CORTICOTROPIN
     Indication: PROTEINURIA
     Dosage: 40 UNITS TWICE WEEKLY (TUE/FRI)
     Route: 030
     Dates: start: 20151229

REACTIONS (2)
  - Nephrotic syndrome [Not Recovered/Not Resolved]
  - Stomal hernia [Recovered/Resolved]

NARRATIVE: CASE EVENT DATE: 2016
